FAERS Safety Report 10682341 (Version 1)
Quarter: 2014Q4

REPORT INFORMATION
  Report Type: Spontaneous
  Country: US (occurrence: None)
  Receive Date: 20141229
  Receipt Date: 20141229
  Transmission Date: 20150529
  Serious: Yes (Disabling)
  Sender: FDA-Public Use
  Company Number: None

PATIENT
  Age: 53 Year
  Sex: Female

DRUGS (3)
  1. OXYCODONE [Suspect]
     Active Substance: OXYCODONE
     Indication: NEUROPATHY PERIPHERAL
     Dosage: 1 PILL THREE TIMES DAILY TAKEN BY MOUTH
     Route: 048
     Dates: start: 20140131, end: 20140228
  2. OXYCODONE [Suspect]
     Active Substance: OXYCODONE
     Indication: FIBROMYALGIA
     Dosage: 1 PILL THREE TIMES DAILY TAKEN BY MOUTH
     Route: 048
     Dates: start: 20140131, end: 20140228
  3. OXYCODONE [Suspect]
     Active Substance: OXYCODONE
     Indication: CYSTITIS INTERSTITIAL
     Dosage: 1 PILL THREE TIMES DAILY TAKEN BY MOUTH
     Route: 048
     Dates: start: 20140131, end: 20140228

REACTIONS (9)
  - Malaise [None]
  - Drug effect decreased [None]
  - Ocular discomfort [None]
  - Headache [None]
  - Product substitution issue [None]
  - Product quality issue [None]
  - Irritable bowel syndrome [None]
  - Dyspepsia [None]
  - Anxiety [None]

NARRATIVE: CASE EVENT DATE: 20140212
